FAERS Safety Report 6138125-5 (Version None)
Quarter: 2009Q1

REPORT INFORMATION
  Report Type: 
  Country: None (occurrence: None)
  Receive Date: 20090225
  Receipt Date: 20090216
  Transmission Date: 20090719
  Serious: Yes (Death, Hospitalization, Other)
  Sender: FDA-Public Use
  Company Number: 2009US000231

PATIENT
  Age: 55 Year
  Sex: Male

DRUGS (23)
  1. AMEVIVE [Suspect]
     Indication: PSORIASIS
     Dosage: 15 MG, WEEKLY,; 15 MG,
     Dates: start: 20081010
  2. AMEVIVE [Suspect]
     Indication: PSORIASIS
     Dosage: 15 MG, WEEKLY,; 15 MG,
     Dates: start: 20081203
  3. METHOTREXATE [Suspect]
     Indication: PSORIASIS
     Dosage: 15 MG, WEEKLY,
  4. MORPHINE [Concomitant]
  5. FLUCONAZOLE [Concomitant]
  6. ACYCLOVIR [Concomitant]
  7. BALNETAR, 2.5 % [Concomitant]
  8. LOVENOX [Concomitant]
  9. FOLIC ACID [Concomitant]
  10. INSULIN (INSULIN) [Concomitant]
  11. MEGACE [Concomitant]
  12. MIRTAZAPINE [Concomitant]
  13. ZOFRAN [Concomitant]
  14. OXYCODONE HCL [Concomitant]
  15. PROTONIX [Concomitant]
  16. SENNA PLUS (DOCUSATE SODIUM) TABLET [Concomitant]
  17. TRIAMCINOLONE (TRIAMCINOLONE) CREAM, 0.1 % [Concomitant]
  18. HYDROCERIN (WOOL ALCOHOLS, PARAFFIN, LIQUID) CREAM [Concomitant]
  19. SEPTRA [Concomitant]
  20. AQUAPHOR (PARAFFIN) [Concomitant]
  21. EUCERIN (PARAFFIN, LIQUID, PETROLATUM, WOOL FAT) [Concomitant]
  22. DENOSIDE (DENOSIDE) [Concomitant]
  23. MOMETASONE FUROATE [Concomitant]

REACTIONS (11)
  - ADRENAL INSUFFICIENCY [None]
  - DEPRESSED LEVEL OF CONSCIOUSNESS [None]
  - DISEASE RECURRENCE [None]
  - FEELING COLD [None]
  - LYMPHOPENIA [None]
  - OTITIS EXTERNA [None]
  - PANCYTOPENIA [None]
  - PSORIASIS [None]
  - SEPSIS [None]
  - SEPTIC SHOCK [None]
  - SYSTEMIC CANDIDA [None]
